FAERS Safety Report 7931752 (Version 6)
Quarter: 2013Q4

REPORT INFORMATION
  Report Type: Spontaneous
  Country: US (occurrence: US)
  Receive Date: 20110505
  Receipt Date: 20131004
  Transmission Date: 20140711
  Serious: Yes (Hospitalization, Other)
  Sender: FDA-Public Use
  Company Number: US-ROCHE-718969

PATIENT
  Age: 15 Year
  Sex: Male
  Weight: 54.4 kg

DRUGS (3)
  1. ACCUTANE [Suspect]
     Indication: ACNE
     Route: 065
  2. ACCUTANE [Suspect]
     Route: 065
     Dates: start: 199604, end: 199610
  3. ACCUTANE [Suspect]
     Route: 065

REACTIONS (13)
  - Colitis ulcerative [Unknown]
  - Anal abscess [Unknown]
  - Gastrointestinal injury [Unknown]
  - Inflammatory bowel disease [Unknown]
  - Rectal ulcer [Unknown]
  - Anal fissure [Unknown]
  - Large intestine polyp [Unknown]
  - Irritable bowel syndrome [Unknown]
  - Dry eye [Unknown]
  - Epistaxis [Unknown]
  - Lip dry [Unknown]
  - Dry skin [Unknown]
  - Cheilitis [Recovered/Resolved]
